FAERS Safety Report 8798323 (Version 1)
Quarter: 2012Q4

REPORT INFORMATION
  Report Type: Report from Study
  Country: RU (occurrence: RU)
  Receive Date: 20120920
  Receipt Date: 20120920
  Transmission Date: 20130627
  Serious: Yes (Other)
  Sender: FDA-Public Use
  Company Number: RU-ROCHE-1127059

PATIENT
  Age: 44 Year
  Sex: Female
  Weight: 45 kg

DRUGS (7)
  1. AVASTIN [Suspect]
     Indication: RECTAL CANCER METASTATIC
     Route: 042
     Dates: start: 20120511, end: 20120830
  2. AVASTIN [Suspect]
     Route: 042
     Dates: start: 20120830
  3. XELODA [Suspect]
     Indication: RECTAL CANCER METASTATIC
     Route: 048
     Dates: start: 20120511, end: 20120809
  4. FLUOROURACIL [Concomitant]
     Indication: RECTAL CANCER METASTATIC
     Route: 040
     Dates: start: 20120830
  5. FLUOROURACIL [Concomitant]
     Route: 042
  6. LEUCOVORIN [Concomitant]
     Indication: RECTAL CANCER METASTATIC
     Route: 042
     Dates: start: 20120830
  7. IRINOTECAN [Concomitant]
     Indication: RECTAL CANCER METASTATIC
     Route: 042
     Dates: start: 20120830

REACTIONS (1)
  - Disease progression [Not Recovered/Not Resolved]
